FAERS Safety Report 4439191-5 (Version None)
Quarter: 2004Q3

REPORT INFORMATION
  Report Type: 
  Country: None (occurrence: None)
  Receive Date: 20040831
  Receipt Date: 20040819
  Transmission Date: 20050211
  Serious: Yes (Hospitalization, Other)
  Sender: FDA-Public Use
  Company Number: 2004229753US

PATIENT
  Age: 76 Year
  Sex: Male
  Weight: 84.4 kg

DRUGS (12)
  1. DETROL LA [Suspect]
     Indication: POLLAKIURIA
     Dosage: 4 MG, QD, ORAL
     Route: 048
     Dates: start: 20010101
  2. FLOMAX [Concomitant]
  3. METOPROLOL [Concomitant]
  4. TRIAZOLAM [Concomitant]
  5. ALPRAZOLAM [Concomitant]
  6. MEVACOR [Concomitant]
  7. RABEPRAZOLE SODIUM [Concomitant]
  8. ZAFIRLUKAST (ZAFIRLUKAST) [Concomitant]
  9. OXYGEN (OXYGEN) [Concomitant]
  10. ALBUTEROL [Concomitant]
  11. IPRATROPIUM BROMIDE [Concomitant]
  12. POTASSIUM CHLORIDE [Concomitant]

REACTIONS (8)
  - CARDIAC VALVE DISEASE [None]
  - DRUG INEFFECTIVE [None]
  - DYSPNOEA [None]
  - NOCTURIA [None]
  - RECTAL HAEMORRHAGE [None]
  - TREATMENT NONCOMPLIANCE [None]
  - URINARY RETENTION [None]
  - WEIGHT INCREASED [None]
